FAERS Safety Report 24336953 (Version 1)
Quarter: 2024Q3

REPORT INFORMATION
  Report Type: Spontaneous
  Country: FR (occurrence: FR)
  Receive Date: 20240919
  Receipt Date: 20240919
  Transmission Date: 20241016
  Serious: Yes (Other)
  Sender: CHEPLAPHARM
  Company Number: None

PATIENT
  Age: 35 Year
  Sex: Male
  Weight: 70 kg

DRUGS (8)
  1. CLONAZEPAM [Suspect]
     Active Substance: CLONAZEPAM
     Dates: end: 20240709
  2. PREGABALIN [Suspect]
     Active Substance: PREGABALIN
     Indication: Tension
     Dates: end: 20240709
  3. PREGABALIN [Suspect]
     Active Substance: PREGABALIN
     Indication: Irritability
     Dates: end: 20240709
  4. MIDOMAFETAMINE [Suspect]
     Active Substance: MIDOMAFETAMINE
     Dates: end: 20240709
  5. CANNABIS SATIVA SUBSP. INDICA TOP [Suspect]
     Active Substance: CANNABIS SATIVA SUBSP. INDICA TOP
     Dates: end: 20240709
  6. COCAINE [Suspect]
     Active Substance: COCAINE
     Dates: end: 20240709
  7. PRAZEPAM [Concomitant]
     Active Substance: PRAZEPAM
     Dosage: 1-0-0?DAILY DOSE: 10 MILLIGRAM
  8. CYAMEMAZINE [Concomitant]
     Active Substance: CYAMEMAZINE
     Dosage: 25 MG 1 AT BEDTIME

REACTIONS (5)
  - Drug abuse [Recovered/Resolved]
  - Intentional self-injury [Recovering/Resolving]
  - Headache [Unknown]
  - Somnolence [Unknown]
  - Mydriasis [Unknown]

NARRATIVE: CASE EVENT DATE: 20240101
